FAERS Safety Report 7334148-9 (Version None)
Quarter: 2011Q1

REPORT INFORMATION
  Report Type: 
  Country: None (occurrence: None)
  Receive Date: 20110307
  Receipt Date: 20110222
  Transmission Date: 20110831
  Serious: Yes (Death, Hospitalization)
  Sender: FDA-Public Use
  Company Number: NL-CELGENEUS-114-21880-11010809

PATIENT
  Sex: Female
  Weight: 87 kg

DRUGS (6)
  1. REVLIMID [Suspect]
     Indication: MYELODYSPLASTIC SYNDROME
     Dosage: 5 MILLIGRAM
     Route: 048
     Dates: start: 20101130, end: 20101222
  2. BETAHISTINE [Concomitant]
     Indication: MENIERE'S DISEASE
     Dosage: 16 MILLIGRAM
     Route: 048
  3. PANTAZOL [Concomitant]
     Indication: PROPHYLAXIS
     Dosage: 40 MILLIGRAM
     Route: 048
  4. EXJADE [Concomitant]
     Indication: IRON OVERLOAD
     Dosage: 500 MILLIGRAM
     Route: 048
     Dates: start: 20100312
  5. PRAVASTATIN [Concomitant]
     Route: 048
  6. AERIUS [Concomitant]
     Dosage: 5 MILLIGRAM
     Route: 048
     Dates: start: 20100628

REACTIONS (3)
  - SEPSIS [None]
  - LUNG ABSCESS [None]
  - MULTI-ORGAN FAILURE [None]
